FAERS Safety Report 9753440 (Version 2)
Quarter: 2013Q4

REPORT INFORMATION
  Report Type: Spontaneous
  Country: US (occurrence: US)
  Receive Date: 20131213
  Receipt Date: 20131213
  Transmission Date: 20140711
  Serious: No
  Sender: FDA-Public Use
  Company Number: US-TEVA-403899USA

PATIENT
  Age: 28 Year
  Sex: Female

DRUGS (1)
  1. PARAGARD 380A [Suspect]
     Indication: CONTRACEPTION
     Route: 015
     Dates: start: 20130403, end: 20130502

REACTIONS (4)
  - Device expulsion [Recovered/Resolved]
  - Metrorrhagia [Unknown]
  - Vaginal discharge [Unknown]
  - Muscle spasms [Recovered/Resolved]
